FAERS Safety Report 6016964-9 (Version None)
Quarter: 2008Q4

REPORT INFORMATION
  Report Type: 
  Country: None (occurrence: None)
  Receive Date: 20081219
  Receipt Date: 20081203
  Transmission Date: 20090506
  Serious: Yes (Hospitalization, Other)
  Sender: FDA-Public Use
  Company Number: 20085725

PATIENT
  Age: 57 Year
  Sex: Female

DRUGS (1)
  1. LIORESAL [Suspect]
     Indication: MUSCLE SPASTICITY
     Dosage: 73.33 MCG, DAILY, INTRATHECAL
     Route: 037

REACTIONS (7)
  - ALTERED STATE OF CONSCIOUSNESS [None]
  - DEVICE RELATED INFECTION [None]
  - DRUG WITHDRAWAL SYNDROME [None]
  - INCISION SITE COMPLICATION [None]
  - MUSCLE SPASMS [None]
  - RASH PUSTULAR [None]
  - STAPHYLOCOCCAL INFECTION [None]
